FAERS Safety Report 21254114 (Version 2)
Quarter: 2022Q3

REPORT INFORMATION
  Report Type: Report from Study
  Country: US (occurrence: US)
  Receive Date: 20220825
  Receipt Date: 20220927
  Transmission Date: 20221027
  Serious: Yes (Hospitalization)
  Sender: FDA-Public Use
  Company Number: US-GILEAD-2022-0594807

PATIENT
  Age: 67 Year
  Sex: Female

DRUGS (5)
  1. AMBRISENTAN [Suspect]
     Active Substance: AMBRISENTAN
     Indication: Pulmonary hypertension
     Dosage: 10 MG, QD
     Route: 065
     Dates: start: 202205, end: 2022
  2. UPTRAVI [Suspect]
     Active Substance: SELEXIPAG
     Indication: Pulmonary hypertension
     Dosage: 600 UG, BID
     Route: 065
     Dates: start: 202208
  3. UPTRAVI [Suspect]
     Active Substance: SELEXIPAG
     Dosage: SHE WAS TAKING IT ^LIKE A Z-PAK^
     Route: 065
     Dates: start: 20220802, end: 20220804
  4. UPTRAVI [Suspect]
     Active Substance: SELEXIPAG
     Dosage: 200 UG, BID
     Route: 065
     Dates: start: 20220805
  5. UPTRAVI [Suspect]
     Active Substance: SELEXIPAG
     Dosage: 1200 UG
     Route: 065

REACTIONS (7)
  - Fluid retention [Unknown]
  - Mental disorder [Unknown]
  - Pain in jaw [Unknown]
  - Paraesthesia [Unknown]
  - Pain in extremity [Unknown]
  - Headache [Unknown]
  - Incorrect dose administered [Recovered/Resolved]

NARRATIVE: CASE EVENT DATE: 20220802
